FAERS Safety Report 6232120-3 (Version None)
Quarter: 2009Q2

REPORT INFORMATION
  Report Type: 
  Country: None (occurrence: None)
  Receive Date: 20090617
  Receipt Date: 20070507
  Transmission Date: 20091009
  Serious: Yes (Hospitalization, Other)
  Sender: FDA-Public Use
  Company Number: US-ASTRAZENECA-2006UW20998

PATIENT
  Age: 49 Year
  Sex: Male
  Weight: 129.7 kg

DRUGS (19)
  1. SEROQUEL [Suspect]
     Indication: INSOMNIA
     Route: 048
     Dates: start: 20030101
  2. SEROQUEL [Suspect]
     Route: 048
     Dates: start: 20050125
  3. LANOXIN [Concomitant]
     Dates: start: 20040826
  4. MAVIK [Concomitant]
     Route: 048
     Dates: start: 20040826
  5. PROCARDIA XL [Concomitant]
     Route: 048
     Dates: start: 20040826
  6. TENORMIN [Concomitant]
     Route: 048
     Dates: start: 20040826
  7. TYLENOL (CAPLET) [Concomitant]
     Dosage: 325-3900 MG
     Route: 048
     Dates: start: 20010126
  8. AMBIEN [Concomitant]
     Indication: INSOMNIA
     Route: 048
     Dates: start: 20060213
  9. TRICOR [Concomitant]
     Dosage: 48-54 MG
     Route: 048
     Dates: start: 20050125
  10. LORTAB [Concomitant]
     Indication: PAIN
     Dosage: 10-7.5 MG
     Route: 048
     Dates: start: 20010227
  11. AMARYL [Concomitant]
     Route: 048
     Dates: start: 20010126
  12. PREVACID [Concomitant]
     Route: 048
     Dates: start: 20010129
  13. PHENERGAN [Concomitant]
     Route: 048
     Dates: start: 20010203
  14. ROCEPHIN [Concomitant]
     Dates: start: 20010227
  15. TEGRETOL [Concomitant]
     Route: 048
     Dates: start: 20060309
  16. DILANTIN [Concomitant]
     Dosage: 100-300MG
     Route: 048
     Dates: start: 20060213
  17. DIGOXIN [Concomitant]
     Route: 048
     Dates: start: 20060213
  18. KEPPRA [Concomitant]
     Route: 048
     Dates: start: 20060213
  19. ATIVAN [Concomitant]
     Dates: start: 20060213

REACTIONS (7)
  - CONVULSION [None]
  - DIABETES MELLITUS [None]
  - DIABETES MELLITUS INADEQUATE CONTROL [None]
  - DIABETIC FOOT [None]
  - HYPERGLYCAEMIA [None]
  - PARTIAL SEIZURES [None]
  - TYPE 2 DIABETES MELLITUS [None]
